FAERS Safety Report 15789043 (Version 4)
Quarter: 2019Q1

REPORT INFORMATION
  Report Type: Spontaneous
  Country: US (occurrence: US)
  Receive Date: 20190104
  Receipt Date: 20190225
  Transmission Date: 20190417
  Serious: No
  Sender: FDA-Public Use
  Company Number: US-PFIZER INC-2019003615

PATIENT
  Age: 68 Year
  Sex: Female
  Weight: 68 kg

DRUGS (3)
  1. GABAPENTIN. [Suspect]
     Active Substance: GABAPENTIN
     Indication: BONE PAIN
     Dosage: 100 MG, AS NEEDED
  2. GABAPENTIN. [Suspect]
     Active Substance: GABAPENTIN
     Indication: PAIN
     Dosage: 100 MG, TWICE A DAY
  3. GABAPENTIN. [Suspect]
     Active Substance: GABAPENTIN
     Indication: PAIN OF SKIN
     Dosage: 100 MG, AS NEEDED (BUT WHEN THE PAIN GETS SEVERE, SHE TAKES TWO CAPSULES THREE TIMES A DAY)
     Dates: start: 201812

REACTIONS (2)
  - Drug ineffective for unapproved indication [Unknown]
  - Chills [Recovered/Resolved]
